FAERS Safety Report 15624189 (Version 1)
Quarter: 2018Q4

REPORT INFORMATION
  Report Type: Spontaneous
  Country: CO (occurrence: CO)
  Receive Date: 20181116
  Receipt Date: 20181116
  Transmission Date: 20190205
  Serious: Yes (Other)
  Sender: FDA-Public Use
  Company Number: CO-ROCHE-2214370

PATIENT
  Age: 43 Year
  Sex: Female
  Weight: 88.4 kg

DRUGS (14)
  1. BUDESONIDE/FORMOTEROL [Concomitant]
     Active Substance: BUDESONIDE\FORMOTEROL
  2. PREDNISOLONE. [Concomitant]
     Active Substance: PREDNISOLONE
     Route: 065
  3. VALSARTAN. [Concomitant]
     Active Substance: VALSARTAN
     Route: 065
  4. AMLODIPINE [Concomitant]
     Active Substance: AMLODIPINE BESYLATE
     Route: 065
  5. MABTHERA [Suspect]
     Active Substance: RITUXIMAB
     Indication: RHEUMATOID ARTHRITIS
     Dosage: DAY 0 AND 15
     Route: 042
     Dates: start: 20171107
  6. ATORVASTATIN [Concomitant]
     Active Substance: ATORVASTATIN
     Route: 065
  7. HYDROCHLOROTHIAZIDE. [Concomitant]
     Active Substance: HYDROCHLOROTHIAZIDE
     Route: 065
  8. TRAMADOL/ACETAMINOPHEN [Concomitant]
     Active Substance: ACETAMINOPHEN\TRAMADOL
     Dosage: ACCORDING TO NEED
     Route: 065
  9. CHLOROQUINE. [Concomitant]
     Active Substance: CHLOROQUINE
     Route: 065
  10. PYRIDOXINE [Concomitant]
     Active Substance: PYRIDOXINE
     Indication: LATENT TUBERCULOSIS
     Route: 065
  11. ESOMEPRAZOLE. [Concomitant]
     Active Substance: ESOMEPRAZOLE MAGNESIUM
     Route: 065
  12. ACYCLOVIR. [Concomitant]
     Active Substance: ACYCLOVIR
     Route: 065
  13. ISONIAZID. [Concomitant]
     Active Substance: ISONIAZID
     Indication: LATENT TUBERCULOSIS
     Route: 065
  14. CYCLOPHOSPHAMIDE. [Concomitant]
     Active Substance: CYCLOPHOSPHAMIDE

REACTIONS (14)
  - Herpes virus infection [Unknown]
  - Dry mouth [Unknown]
  - Abdominal pain lower [Unknown]
  - Odynophagia [Unknown]
  - Arthralgia [Unknown]
  - Pain in extremity [Unknown]
  - Gingival bleeding [Unknown]
  - Polydipsia [Unknown]
  - Burning sensation [Unknown]
  - Dyspnoea [Unknown]
  - Oropharyngeal pain [Unknown]
  - Tachycardia [Unknown]
  - Musculoskeletal stiffness [Unknown]
  - Epistaxis [Unknown]
